FAERS Safety Report 12848430 (Version 2)
Quarter: 2016Q4

REPORT INFORMATION
  Report Type: Spontaneous
  Country: US (occurrence: US)
  Receive Date: 20161014
  Receipt Date: 20161121
  Transmission Date: 20170207
  Serious: No
  Sender: FDA-Public Use
  Company Number: US-JNJFOC-20161000809

PATIENT
  Age: 51 Year
  Sex: Female
  Weight: 121.56 kg

DRUGS (2)
  1. MOTRIN IB [Suspect]
     Active Substance: IBUPROFEN
     Route: 048
  2. MOTRIN IB [Suspect]
     Active Substance: IBUPROFEN
     Indication: PROCEDURAL PAIN
     Dosage: ONCE
     Route: 048
     Dates: start: 20160929, end: 20160929

REACTIONS (4)
  - Intentional product use issue [Unknown]
  - Product label confusion [Unknown]
  - Intentional product misuse [Unknown]
  - Product label issue [Unknown]
